FAERS Safety Report 4385890-3 (Version None)
Quarter: 2004Q2

REPORT INFORMATION
  Report Type: 
  Country: None (occurrence: None)
  Receive Date: 20040622
  Receipt Date: 20040607
  Transmission Date: 20050107
  Serious: Yes (Hospitalization)
  Sender: FDA-Public Use
  Company Number: 30020075-NA01-1

PATIENT
  Age: 53 Year
  Sex: Male
  Weight: 61.75 kg

DRUGS (13)
  1. DIANEAL PD2 1.5% (HIGH CALCIUM) [Suspect]
     Indication: PERITONEAL DIALYSIS
     Dosage: 2L X3/DAY; 2L X4/DAY; 2L X4/DAY; 2L X5/DAY
     Dates: start: 20031222, end: 20040201
  2. DIANEAL PD2 1.5% (HIGH CALCIUM) [Suspect]
     Indication: PERITONEAL DIALYSIS
     Dosage: 2L X3/DAY; 2L X4/DAY; 2L X4/DAY; 2L X5/DAY
     Dates: start: 20040202, end: 20040216
  3. DIANEAL PD2 1.5% (HIGH CALCIUM) [Suspect]
     Indication: PERITONEAL DIALYSIS
     Dosage: 2L X3/DAY; 2L X4/DAY; 2L X4/DAY; 2L X5/DAY
     Dates: start: 20040217, end: 20040513
  4. DIANEAL PD2 1.5% (HIGH CALCIUM) [Suspect]
     Indication: PERITONEAL DIALYSIS
     Dosage: 2L X3/DAY; 2L X4/DAY; 2L X4/DAY; 2L X5/DAY
     Dates: start: 20031222
  5. DIANEAL PD2 1.5% (HIGH CALCIUM) [Suspect]
     Indication: PERITONEAL DIALYSIS
     Dosage: 2L X3/DAY; 2L X4/DAY; 2L X4/DAY; 2L X5/DAY
     Dates: start: 20040514
  6. PHYSIONEAL 35 1.5% HIGH CALCIUM [Suspect]
     Indication: PERITONEAL DIALYSIS
     Dosage: 2L X3/DAY; 2L X4/DAY
     Dates: start: 20031222, end: 20040201
  7. PHYSIONEAL 35 1.5% HIGH CALCIUM [Suspect]
     Indication: PERITONEAL DIALYSIS
     Dosage: 2L X3/DAY; 2L X4/DAY
     Dates: start: 20040202, end: 20040216
  8. REBAMEPIDE [Concomitant]
  9. LISINOPRIL [Concomitant]
  10. AMLODIPINE [Concomitant]
  11. ALFACALCIDOL [Concomitant]
  12. ATORVASTATIN CALCIUM [Concomitant]
  13. CA CARBONATE [Concomitant]

REACTIONS (4)
  - ANAEMIA [None]
  - AZOTAEMIA [None]
  - HAEMODIALYSIS [None]
  - INSOMNIA [None]
